FAERS Safety Report 22018878 (Version 1)
Quarter: 2023Q1

REPORT INFORMATION
  Report Type: Other
  Country: US (occurrence: None)
  Receive Date: 20230222
  Receipt Date: 20230222
  Transmission Date: 20230418
  Serious: Yes (Death)
  Sender: FDA-Public Use
  Company Number: US-ROCHE-3290537

PATIENT
  Age: 73 Year
  Sex: Female

DRUGS (1)
  1. HERCEPTIN [Suspect]
     Active Substance: TRASTUZUMAB
     Indication: Gastric cancer
     Dosage: INFUSE 320MG INTRAVENOUSLY EVERY 3 WEEK(S)
     Route: 042
     Dates: start: 20220422

REACTIONS (2)
  - Death [Fatal]
  - Off label use [Unknown]
